FAERS Safety Report 7669277-3 (Version None)
Quarter: 2011Q3

REPORT INFORMATION
  Report Type: 
  Country: None (occurrence: None)
  Receive Date: 20110808
  Receipt Date: 20110801
  Transmission Date: 20111222
  Serious: Yes (Death, Other)
  Sender: FDA-Public Use
  Company Number: PHHO2011US12823

PATIENT
  Sex: Male

DRUGS (6)
  1. ATENOLOL [Concomitant]
     Dosage: UNK
     Dates: start: 20110524
  2. CYCLOSPORINE [Suspect]
     Indication: RENAL TRANSPLANT
     Dosage: 150 MG, QD
     Route: 048
     Dates: start: 20080219
  3. PREDNISONE [Suspect]
     Indication: RENAL TRANSPLANT
     Dosage: 5 MG, QD
     Route: 048
     Dates: start: 20070409
  4. MYCOPHENOLATE MOFETIL [Suspect]
     Indication: RENAL TRANSPLANT
     Dosage: 200 MG, QD
     Route: 048
     Dates: start: 20070308
  5. AMLODIPINE [Concomitant]
     Dosage: UNK
     Dates: start: 20090310
  6. ASPIRIN [Concomitant]
     Dosage: UNK
     Dates: start: 20110309

REACTIONS (2)
  - IRIS NEOPLASM [None]
  - CARDIAC ARREST [None]
